FAERS Safety Report 10786410 (Version 1)
Quarter: 2015Q1

REPORT INFORMATION
  Report Type: Spontaneous
  Country: US (occurrence: None)
  Receive Date: 20150210
  Receipt Date: 20150210
  Transmission Date: 20150721
  Serious: Yes (Life-Threatening, Other)
  Sender: FDA-Public Use
  Company Number: None

PATIENT
  Age: 37 Year
  Sex: Female
  Weight: 81.65 kg

DRUGS (1)
  1. WELLBUTRIN [Suspect]
     Active Substance: BUPROPION HYDROCHLORIDE
     Indication: SMOKING CESSATION THERAPY
     Dosage: 2 PILLS TWICE DAILY
     Route: 048
     Dates: start: 20150126, end: 20150202

REACTIONS (5)
  - Agitation [None]
  - Insomnia [None]
  - Suicidal ideation [None]
  - Homicidal ideation [None]
  - Palpitations [None]

NARRATIVE: CASE EVENT DATE: 20150202
